FAERS Safety Report 12548978 (Version 2)
Quarter: 2016Q4

REPORT INFORMATION
  Report Type: Spontaneous
  Country: US (occurrence: US)
  Receive Date: 20160712
  Receipt Date: 20161013
  Transmission Date: 20170207
  Serious: Yes (Hospitalization)
  Sender: FDA-Public Use
  Company Number: US-AUROBINDO-AUR-APL-2016-08790

PATIENT
  Age: 51 Year
  Sex: Female

DRUGS (1)
  1. PREDNISONE. [Suspect]
     Active Substance: PREDNISONE
     Indication: PRODUCT USED FOR UNKNOWN INDICATION
     Route: 065

REACTIONS (16)
  - Sepsis [Unknown]
  - Thrombotic microangiopathy [Unknown]
  - Bacteroides infection [Unknown]
  - Klebsiella infection [Unknown]
  - Strongyloidiasis [Unknown]
  - Condition aggravated [Unknown]
  - Tachycardia [Unknown]
  - Toxicity to various agents [Unknown]
  - Diarrhoea [Unknown]
  - Platelet count decreased [Unknown]
  - Acute respiratory distress syndrome [Unknown]
  - Haemolytic uraemic syndrome [Unknown]
  - Leukocytosis [Unknown]
  - Microcytic anaemia [Unknown]
  - Blood creatinine increased [Unknown]
  - Hypoalbuminaemia [Unknown]
